FAERS Safety Report 8511662-1 (Version None)
Quarter: 2012Q3

REPORT INFORMATION
  Report Type: 
  Country: None (occurrence: None)
  Receive Date: 20120716
  Receipt Date: 20120702
  Transmission Date: 20120928
  Serious: Yes (Death, Hospitalization)
  Sender: FDA-Public Use
  Company Number: CN-ELI_LILLY_AND_COMPANY-CN201207000187

PATIENT
  Age: 61 Year
  Sex: Female

DRUGS (2)
  1. ZYPREXA [Suspect]
     Indication: SCHIZOPHRENIA
     Dosage: 10 MG, QD
     Route: 048
     Dates: start: 20120528
  2. ZYPREXA [Suspect]
     Dosage: 20 MG, QD

REACTIONS (3)
  - DEATH [None]
  - COMA [None]
  - ARRHYTHMIA [None]
